FAERS Safety Report 12603099 (Version 4)
Quarter: 2018Q1

REPORT INFORMATION
  Report Type: Report from Study
  Country: CA (occurrence: CA)
  Receive Date: 20160728
  Receipt Date: 20180212
  Transmission Date: 20180508
  Serious: Yes (Other)
  Sender: FDA-Public Use
  Company Number: CA-KADMON PHARMACEUTICALS, LLC-KAD201607-002836

PATIENT
  Age: 67 Year
  Sex: Male
  Weight: 84.36 kg

DRUGS (7)
  1. ASPIRIN. [Concomitant]
     Active Substance: ASPIRIN
  2. BISOPROLOL [Concomitant]
     Active Substance: BISOPROLOL
  3. RIBAVIRIN. [Suspect]
     Active Substance: RIBAVIRIN
     Route: 048
     Dates: start: 20160713
  4. HOLKIRA PAK [Suspect]
     Active Substance: DASABUVIR\OMBITASVIR\PARITAPREVIR\RITONAVIR
     Indication: CHRONIC HEPATITIS C
     Dosage: 2X 12.5/75/50 MG TABLETS QD, 1X 250 MG TABLET BID
     Route: 048
     Dates: start: 20160708
  5. RIBAVIRIN. [Suspect]
     Active Substance: RIBAVIRIN
     Indication: CHRONIC HEPATITIS C
     Route: 048
     Dates: start: 20160708, end: 20160712
  6. NOVO 70/30 [Concomitant]
  7. ATENOLOL. [Concomitant]
     Active Substance: ATENOLOL

REACTIONS (9)
  - Photopsia [Recovering/Resolving]
  - Insomnia [Not Recovered/Not Resolved]
  - Delirium [Recovering/Resolving]
  - Psychotic disorder [Recovering/Resolving]
  - Night sweats [Not Recovered/Not Resolved]
  - Disorientation [Recovering/Resolving]
  - Laceration [Recovering/Resolving]
  - Eye contusion [Recovering/Resolving]
  - Laceration [Unknown]

NARRATIVE: CASE EVENT DATE: 201607
